FAERS Safety Report 8515404-5 (Version None)
Quarter: 2012Q2

REPORT INFORMATION
  Report Type: 
  Country: None (occurrence: None)
  Receive Date: 20120406
  Receipt Date: 20090602
  Transmission Date: 20120825
  Serious: Yes (Other)
  Sender: FDA-Public Use
  Company Number: PHEH2009US02989

PATIENT
  Age: 57 Year
  Sex: Male
  Weight: 97.2 kg

DRUGS (12)
  1. PLAVIX [Concomitant]
  2. PREVACID [Concomitant]
  3. ATACAND (CANDESARTAN CILEXITIL) [Concomitant]
  4. COREG [Concomitant]
  5. LASIX [Concomitant]
  6. VYTORIN [Concomitant]
  7. TASIGNA [Suspect]
     Indication: CHRONIC MYELOID LEUKAEMIA
     Dosage: 400 MG, BID, ORAL
     Route: 048
     Dates: start: 20090314, end: 20090317
  8. INSPRA [Concomitant]
  9. ASPIRIN [Concomitant]
  10. CLARITIN [Concomitant]
  11. REGLAN [Concomitant]
  12. NITRO-DUR [Concomitant]

REACTIONS (6)
  - PLEURAL EFFUSION [None]
  - NAUSEA [None]
  - MYOCARDIAL INFARCTION [None]
  - HEADACHE [None]
  - LOSS OF CONSCIOUSNESS [None]
  - HYPOTENSION [None]
